FAERS Safety Report 8273388-1 (Version None)
Quarter: 2012Q2

REPORT INFORMATION
  Report Type: 
  Country: None (occurrence: None)
  Receive Date: 20120411
  Receipt Date: 20120405
  Transmission Date: 20120825
  Serious: Yes (Hospitalization)
  Sender: FDA-Public Use
  Company Number: PHFR2012IE002159

PATIENT
  Sex: Male

DRUGS (2)
  1. CLOZARIL [Suspect]
     Dosage: 600MG EXTRA CLOZARIL (200MG PM USUAL DAILY DOSE)
     Route: 048
     Dates: start: 20120401
  2. CLOZARIL [Suspect]
     Indication: SCHIZOPHRENIA
     Dosage: 200 MG DAILY
     Route: 048
     Dates: start: 20111122

REACTIONS (2)
  - SUICIDAL IDEATION [None]
  - INCORRECT DOSE ADMINISTERED [None]
